FAERS Safety Report 8486261 (Version 4)
Quarter: 2012Q4

REPORT INFORMATION
  Report Type: 
  Country: US (occurrence: US)
  Receive Date: 20120402
  Receipt Date: 20120920
  Transmission Date: 20130627
  Serious: Yes (Hospitalization)
  Sender: FDA-Public Use
  Company Number: US-BAYER-2012-028734

PATIENT
  Age: 18 Year
  Sex: Female
  Weight: 63.49 kg

DRUGS (7)
  1. OCELLA [Suspect]
     Indication: PREMENSTRUAL SYNDROME
     Dosage: UNK
     Dates: start: 200803, end: 201003
  2. OCELLA [Suspect]
     Indication: PREMENSTRUAL SYNDROME
     Dosage: UNK
     Dates: start: 200901
  3. YASMIN [Suspect]
     Indication: ACNE
     Dosage: UNK
     Dates: start: 200803
  4. MIRALAX [Concomitant]
  5. STOOL SOFTENER [Concomitant]
  6. PREVACID [Concomitant]
  7. PREDNISONE [Concomitant]
     Dosage: 20 mg, UNK

REACTIONS (5)
  - Pulmonary embolism [None]
  - Pulmonary infarction [None]
  - Injury [None]
  - Pain [None]
  - Pain [None]
